FAERS Safety Report 17033680 (Version 1)
Quarter: 2019Q4

REPORT INFORMATION
  Report Type: Spontaneous
  Country: ES (occurrence: ES)
  Receive Date: 20191114
  Receipt Date: 20191114
  Transmission Date: 20200122
  Serious: Yes (Other)
  Sender: FDA-Public Use
  Company Number: ES-ALLERGAN-1946090US

PATIENT
  Sex: Female

DRUGS (3)
  1. TRANKIMAZIN [Concomitant]
     Active Substance: ALPRAZOLAM
     Indication: PRODUCT USED FOR UNKNOWN INDICATION
     Dosage: 0.25 MG, Q8HR, 1-1-1
     Route: 065
     Dates: start: 20190408
  2. ATORVASTATINA [Concomitant]
     Active Substance: ATORVASTATIN
     Indication: PRODUCT USED FOR UNKNOWN INDICATION
     Dosage: 0-0-1
     Route: 065
     Dates: start: 20190408
  3. ESCITALOPRAM OXALATE - BP [Suspect]
     Active Substance: ESCITALOPRAM OXALATE
     Indication: BEREAVEMENT
     Dosage: 15 MG
     Route: 048
     Dates: start: 20190925

REACTIONS (4)
  - Depressed mood [Unknown]
  - Tongue discolouration [Unknown]
  - Product use in unapproved indication [Unknown]
  - Glossitis [Unknown]

NARRATIVE: CASE EVENT DATE: 2019
